FAERS Safety Report 13142978 (Version 2)
Quarter: 2017Q3

REPORT INFORMATION
  Report Type: Spontaneous
  Country: US (occurrence: US)
  Receive Date: 20170124
  Receipt Date: 20170705
  Transmission Date: 20171127
  Serious: No
  Sender: FDA-Public Use
  Company Number: US-PFIZER INC-2017029775

PATIENT
  Age: 66 Year
  Sex: Female

DRUGS (1)
  1. XELJANZ XR [Suspect]
     Active Substance: TOFACITINIB CITRATE
     Dosage: 11 MG, UNK
     Dates: start: 20160914

REACTIONS (5)
  - Pain [Unknown]
  - Pyrexia [Unknown]
  - Malaise [Unknown]
  - Joint swelling [Unknown]
  - Ligament rupture [Unknown]
